FAERS Safety Report 24396287 (Version 1)
Quarter: 2024Q4

REPORT INFORMATION
  Report Type: Spontaneous
  Country: CA (occurrence: CA)
  Receive Date: 20241004
  Receipt Date: 20241004
  Transmission Date: 20250114
  Serious: Yes (Other)
  Sender: PFIZER
  Company Number: CA-PFIZER INC-202400268696

PATIENT
  Age: 46 Year
  Sex: Male

DRUGS (1)
  1. EPINEPHRINE [Suspect]
     Active Substance: EPINEPHRINE
     Indication: Anaphylactic reaction
     Dosage: 0.1 MG, SINGLE
     Route: 042

REACTIONS (3)
  - Chest pain [Recovered/Resolved]
  - Chills [Recovered/Resolved]
  - Incorrect route of product administration [Recovered/Resolved]
